FAERS Safety Report 9729921 (Version 2)
Quarter: 2014Q1

REPORT INFORMATION
  Report Type: Spontaneous
  Country: US (occurrence: US)
  Receive Date: 20131204
  Receipt Date: 20140131
  Transmission Date: 20141002
  Serious: Yes (Other)
  Sender: FDA-Public Use
  Company Number: US-UCBSA-104345

PATIENT
  Sex: Female
  Weight: 81.64 kg

DRUGS (9)
  1. KEPPRA XR [Suspect]
     Indication: CONVULSION
     Dosage: 750 MG
  2. KEPPRA XR [Suspect]
     Indication: CONVULSION
     Dosage: 1500 MG
  3. KEPPRA XR [Suspect]
     Indication: CONVULSION
     Dosage: 2250 MG
  4. KEPPRA XR [Suspect]
     Indication: CONVULSION
     Dates: start: 2013
  5. KLONIPINE [Concomitant]
     Indication: CONVULSION
     Route: 048
  6. PROZAC [Concomitant]
     Indication: ANXIETY
     Route: 048
  7. PROZAC [Concomitant]
     Indication: DEPRESSION
     Route: 048
  8. LAMISIL [Concomitant]
     Indication: ONYCHOMYCOSIS
     Dosage: STARTED IN DECEMBER, ONCE IN A DAY
     Route: 048
  9. ENDOMETHICIN [Concomitant]
     Indication: HEADACHE
     Route: 048

REACTIONS (2)
  - Convulsion [Not Recovered/Not Resolved]
  - Aura [Not Recovered/Not Resolved]
